FAERS Safety Report 10558177 (Version 1)
Quarter: 2014Q4

REPORT INFORMATION
  Report Type: Spontaneous
  Country: US (occurrence: None)
  Receive Date: 20141030
  Receipt Date: 20141030
  Transmission Date: 20150529
  Serious: No
  Sender: FDA-Public Use
  Company Number: 2014CT000175

PATIENT
  Age: 34 Year
  Sex: Female
  Weight: 83.92 kg

DRUGS (9)
  1. BROMOCRIPTINS [Concomitant]
  2. CALCITRIOL. [Concomitant]
     Active Substance: CALCITRIOL
  3. OCTREOTIDE [Concomitant]
     Active Substance: OCTREOTIDE
  4. VITAMIN D [Concomitant]
     Active Substance: CHOLECALCIFEROL
  5. HCTZ [Concomitant]
     Active Substance: HYDROCHLOROTHIAZIDE
  6. POTASSIUM SUPPLEMENTS [Concomitant]
  7. CALCIUM [Concomitant]
     Active Substance: CALCIUM
  8. KORLYM [Suspect]
     Active Substance: MIFEPRISTONE
     Indication: CUSHING^S SYNDROME
     Route: 048
     Dates: start: 201410
  9. OMERPRAZONE [Concomitant]

REACTIONS (1)
  - Vaginal haemorrhage [None]

NARRATIVE: CASE EVENT DATE: 201410
